FAERS Safety Report 17815811 (Version 1)
Quarter: 2020Q2

REPORT INFORMATION
  Report Type: Spontaneous
  Country: TW (occurrence: TW)
  Receive Date: 20200522
  Receipt Date: 20200522
  Transmission Date: 20200714
  Serious: Yes (Hospitalization, Other)
  Sender: FDA-Public Use
  Company Number: TW-MACLEODS PHARMACEUTICALS US LTD-MAC2020026545

PATIENT

DRUGS (6)
  1. QUETIAPINE. [Suspect]
     Active Substance: QUETIAPINE
     Indication: SUICIDE ATTEMPT
     Dosage: UNK, SHE ATTEMPTED TO SUICIDE WITH AN UNKNOWN AMOUNT OF QUETIAPINE
     Route: 065
  2. CLONAZEPAM. [Suspect]
     Active Substance: CLONAZEPAM
     Indication: SUICIDE ATTEMPT
     Dosage: UNK, SHE ATTEMPTED TO SUICIDE WITH AN UNKNOWN AMOUNT OF CLONAZEPAM
     Route: 065
  3. PROPRANOLOL HYDROCHLORIDE. [Suspect]
     Active Substance: PROPRANOLOL HYDROCHLORIDE
     Indication: SUICIDE ATTEMPT
     Dosage: UNK, SHE ATTEMPTED TO SUICIDE WITH AN UNKNOWN AMOUNT OF PROPRANOLOL
     Route: 065
  4. FLUNITRAZEPAM [Suspect]
     Active Substance: FLUNITRAZEPAM
     Indication: SUICIDE ATTEMPT
     Dosage: UNK, SHE ATTEMPTED TO SUICIDE WITH AN UNKNOWN AMOUNT OF FLUNITRAZEPAM
     Route: 065
  5. FLURAZEPAM [Suspect]
     Active Substance: FLURAZEPAM HYDROCHLORIDE
     Indication: SUICIDE ATTEMPT
     Dosage: UNK, SHE ATTEMPTED TO SUICIDE WITH AN UNKNOWN AMOUNT OF FLURAZEPAM
     Route: 065
  6. FLUPENTIXOL [Suspect]
     Active Substance: FLUPENTIXOL
     Indication: SUICIDE ATTEMPT
     Dosage: UNK, SHE ATTEMPTED TO SUICIDE WITH AN UNKNOWN AMOUNT OF FLUPENTIXOL
     Route: 065

REACTIONS (7)
  - Brain oedema [Unknown]
  - Altered state of consciousness [Unknown]
  - Brain stem stroke [Unknown]
  - Leukocytosis [Unknown]
  - Thalamic infarction [Unknown]
  - Blood creatinine increased [Unknown]
  - Intentional overdose [Unknown]
